FAERS Safety Report 5448858-1 (Version None)
Quarter: 2007Q3

REPORT INFORMATION
  Report Type: 
  Country: None (occurrence: None)
  Receive Date: 20070911
  Receipt Date: 20070725
  Transmission Date: 20080115
  Serious: No
  Sender: FDA-Public Use
  Company Number: US-BRISTOL-MYERS SQUIBB COMPANY-13858063

PATIENT
  Sex: Female
  Weight: 57 kg

DRUGS (4)
  1. EMSAM [Suspect]
     Dates: start: 20070601
  2. MULTI-VITAMIN [Concomitant]
  3. FISH OIL [Concomitant]
  4. LAMICTAL [Concomitant]
     Dates: start: 20070601

REACTIONS (9)
  - ABDOMINAL DISTENSION [None]
  - APPLICATION SITE RASH [None]
  - DRUG INEFFECTIVE [None]
  - DYSGEUSIA [None]
  - HEADACHE [None]
  - INSOMNIA [None]
  - MALAISE [None]
  - SOMNOLENCE [None]
  - WEIGHT INCREASED [None]
